FAERS Safety Report 6051726-8 (Version None)
Quarter: 2009Q1

REPORT INFORMATION
  Report Type: 
  Country: None (occurrence: None)
  Receive Date: 20090126
  Receipt Date: 20090113
  Transmission Date: 20090719
  Serious: Yes (Hospitalization)
  Sender: FDA-Public Use
  Company Number: US-ROCHE-601485

PATIENT
  Sex: Female
  Weight: 58.1 kg

DRUGS (9)
  1. XELODA [Suspect]
     Indication: COLON CANCER STAGE III
     Route: 048
     Dates: start: 20081110, end: 20081123
  2. ASPIRIN [Concomitant]
     Route: 048
  3. CALCIUM CARBONATE/VITAMIN D NOS [Concomitant]
  4. ENALAPRIL MALEATE [Concomitant]
  5. LEVOXYL [Concomitant]
  6. LIPITOR [Concomitant]
  7. METOPROLOL TARTRATE [Concomitant]
     Dosage: FORM: PILL
  8. FEOSOL [Concomitant]
  9. MULTI-VITAMIN [Concomitant]

REACTIONS (9)
  - ACIDOSIS [None]
  - BLOOD ALBUMIN DECREASED [None]
  - BLOOD ELECTROLYTES DECREASED [None]
  - CHROMATURIA [None]
  - DIARRHOEA [None]
  - MUCOSAL INFLAMMATION [None]
  - NAUSEA [None]
  - PALMAR-PLANTAR ERYTHRODYSAESTHESIA SYNDROME [None]
  - RENAL FAILURE ACUTE [None]
